FAERS Safety Report 8252366 (Version 2)
Quarter: 2012Q4

REPORT INFORMATION
  Report Type: 
  Country: US (occurrence: US)
  Receive Date: 20111117
  Receipt Date: 20121023
  Transmission Date: 20130627
  Serious: No
  Sender: FDA-Public Use
  Company Number: US-AMGEN-USASP2011022479

PATIENT
  Age: 68 Year
  Sex: Female
  Weight: 57.6 kg

DRUGS (2)
  1. ENBREL [Suspect]
     Indication: RHEUMATOID ARTHRITIS
     Dosage: 25 mg, 2 times/wk
     Route: 058
  2. FORTEO [Concomitant]
     Dosage: UNK

REACTIONS (1)
  - Injection site pain [Unknown]
